FAERS Safety Report 26174493 (Version 1)
Quarter: 2025Q4

REPORT INFORMATION
  Report Type: Spontaneous
  Country: US (occurrence: US)
  Receive Date: 20251218
  Receipt Date: 20251218
  Transmission Date: 20260119
  Serious: No
  Sender: ALVOGEN
  Company Number: US-ALVOGEN-2025098786

PATIENT

DRUGS (1)
  1. FENTANYL [Suspect]
     Active Substance: FENTANYL
     Indication: Product used for unknown indication

REACTIONS (3)
  - Device malfunction [Unknown]
  - Device adhesion issue [Unknown]
  - No adverse event [Unknown]
